FAERS Safety Report 12465974 (Version 4)
Quarter: 2016Q3

REPORT INFORMATION
  Report Type: Spontaneous
  Country: CA (occurrence: CA)
  Receive Date: 20160614
  Receipt Date: 20160804
  Transmission Date: 20161109
  Serious: Yes (Hospitalization)
  Sender: FDA-Public Use
  Company Number: CA-PFIZER INC-2016289101

PATIENT
  Age: 18 Year
  Sex: Female
  Weight: 80 kg

DRUGS (2)
  1. PARACETAMOL [Suspect]
     Active Substance: ACETAMINOPHEN
     Dosage: 100 G, UNK
  2. IBUPROFEN. [Suspect]
     Active Substance: IBUPROFEN
     Dosage: UNK (HANDFUL OF IBUPROFEN TABLETS)

REACTIONS (4)
  - Analgesic drug level increased [Recovering/Resolving]
  - Intentional overdose [Recovering/Resolving]
  - Mental status changes [Recovering/Resolving]
  - Metabolic acidosis [Recovering/Resolving]
